FAERS Safety Report 6362769-9 (Version None)
Quarter: 2009Q3

REPORT INFORMATION
  Report Type: 
  Country: None (occurrence: None)
  Receive Date: 20090919
  Receipt Date: 20090604
  Transmission Date: 20100115
  Serious: No
  Sender: FDA-Public Use
  Company Number: US-ABBOTT-09P-163-0578677-00

PATIENT
  Sex: Male
  Weight: 117.59 kg

DRUGS (4)
  1. HUMIRA [Suspect]
     Indication: CROHN'S DISEASE
     Route: 058
     Dates: start: 20070701, end: 20070901
  2. HUMIRA [Suspect]
     Route: 058
     Dates: start: 20080101, end: 20081020
  3. HUMIRA [Suspect]
     Route: 058
     Dates: start: 20081126
  4. TYLENOL (CAPLET) [Concomitant]
     Indication: DRUG USE FOR UNKNOWN INDICATION

REACTIONS (2)
  - DRUG EFFECT DECREASED [None]
  - EOSINOPHILIC OESOPHAGITIS [None]
